FAERS Safety Report 6430941-5 (Version None)
Quarter: 2009Q4

REPORT INFORMATION
  Report Type: 
  Country: None (occurrence: None)
  Receive Date: 20091106
  Receipt Date: 20091026
  Transmission Date: 20100525
  Serious: Yes (Hospitalization)
  Sender: FDA-Public Use
  Company Number: DE-TEVA-213636ISR

PATIENT
  Sex: Male

DRUGS (4)
  1. AZILECT [Suspect]
     Indication: PARKINSON'S DISEASE
     Route: 048
  2. STALEVO 100 [Concomitant]
     Indication: PARKINSON'S DISEASE
     Route: 048
  3. MADOPAR [Concomitant]
     Indication: PARKINSON'S DISEASE
     Route: 048
  4. IBUPROFEN [Concomitant]
     Route: 048

REACTIONS (1)
  - INTERVERTEBRAL DISC PROTRUSION [None]
